FAERS Safety Report 18445175 (Version 3)
Quarter: 2020Q4

REPORT INFORMATION
  Report Type: Report from Study
  Country: GB (occurrence: GB)
  Receive Date: 20201030
  Receipt Date: 20201117
  Transmission Date: 20210114
  Serious: Yes (Hospitalization, Other)
  Sender: FDA-Public Use
  Company Number: NVSC2020GB259800

PATIENT
  Age: 77 Year
  Sex: Male

DRUGS (3)
  1. SANDOSTATIN LAR DEPOT [Suspect]
     Active Substance: OCTREOTIDE ACETATE
  2. SANDOSTATIN LAR DEPOT [Suspect]
     Active Substance: OCTREOTIDE ACETATE
     Indication: NEUROENDOCRINE TUMOUR
     Dosage: 50 MG, QMO
     Route: 030
     Dates: start: 2012
  3. SANDOSTATIN LAR DEPOT [Suspect]
     Active Substance: OCTREOTIDE ACETATE

REACTIONS (11)
  - Malaise [Unknown]
  - Flushing [Unknown]
  - Nausea [Unknown]
  - Infection [Unknown]
  - COVID-19 [Unknown]
  - Diarrhoea [Unknown]
  - Movement disorder [Unknown]
  - Arthralgia [Unknown]
  - Incorrect dose administered [Unknown]
  - Feeding disorder [Unknown]
  - Asthenia [Unknown]

NARRATIVE: CASE EVENT DATE: 202009
